FAERS Safety Report 7319015-9 (Version None)
Quarter: 2011Q1

REPORT INFORMATION
  Report Type: 
  Country: None (occurrence: None)
  Receive Date: 20110228
  Receipt Date: 20100403
  Transmission Date: 20110831
  Serious: Yes (Death, Hospitalization, Other)
  Sender: FDA-Public Use
  Company Number: US-BAYER-201018281NA

PATIENT
  Sex: Male
  Weight: 87.982 kg

DRUGS (1)
  1. TRASYLOL [Suspect]
     Indication: PRODUCT USED FOR UNKNOWN INDICATION
     Route: 042
     Dates: start: 20011231

REACTIONS (18)
  - AORTIC VALVE INCOMPETENCE [None]
  - HYPERTENSION [None]
  - DEATH [None]
  - MULTI-ORGAN FAILURE [None]
  - CHEST PAIN [None]
  - RENAL TUBULAR NECROSIS [None]
  - INJURY [None]
  - STRESS [None]
  - ANHEDONIA [None]
  - HAEMORRHAGE [None]
  - RENAL INJURY [None]
  - RENAL FAILURE ACUTE [None]
  - ENCEPHALOPATHY [None]
  - RENAL IMPAIRMENT [None]
  - FEAR [None]
  - COAGULOPATHY [None]
  - RESPIRATORY FAILURE [None]
  - ANXIETY [None]
